FAERS Safety Report 7673517-4 (Version None)
Quarter: 2011Q3

REPORT INFORMATION
  Report Type: 
  Country: None (occurrence: None)
  Receive Date: 20110810
  Receipt Date: 20110727
  Transmission Date: 20111222
  Serious: Yes (Other)
  Sender: FDA-Public Use
  Company Number: DE-UCBSA-037900

PATIENT
  Sex: Male

DRUGS (13)
  1. CUBICIN [Concomitant]
  2. VIMPAT [Suspect]
     Dates: start: 20110701
  3. KEPPRA [Concomitant]
  4. AMIODARONE HCL [Concomitant]
  5. DIGITOXIN TAB [Concomitant]
  6. NOREPINEPHRINE BITARTRATE [Concomitant]
  7. INSUMAN RAPID [Concomitant]
  8. PANTAZOL [Concomitant]
  9. CEFTAZIDIM [Concomitant]
  10. LAMOTRIGINE [Concomitant]
  11. VALPROIC ACID [Concomitant]
  12. XIPAMID [Concomitant]
  13. HEPARIN [Concomitant]

REACTIONS (1)
  - ANURIA [None]
